FAERS Safety Report 13587636 (Version 2)
Quarter: 2017Q2

REPORT INFORMATION
  Report Type: Report from Study
  Country: US (occurrence: US)
  Receive Date: 20170526
  Receipt Date: 20170613
  Transmission Date: 20170830
  Serious: Yes (Other)
  Sender: FDA-Public Use
  Company Number: US-JAZZ-2016-US-024742

PATIENT
  Age: 62 Year
  Sex: Male

DRUGS (11)
  1. AVALIDE [Concomitant]
     Active Substance: HYDROCHLOROTHIAZIDE\IRBESARTAN
  2. CLONAZEPAM. [Concomitant]
     Active Substance: CLONAZEPAM
  3. MVI                                /01825701/ [Concomitant]
     Active Substance: VITAMINS
  4. SONATA                             /00061001/ [Concomitant]
  5. ALENDRONATE [Suspect]
     Active Substance: ALENDRONATE SODIUM
     Indication: PRODUCT USED FOR UNKNOWN INDICATION
  6. BYSTOLIC [Concomitant]
     Active Substance: NEBIVOLOL HYDROCHLORIDE
  7. NEXIUM [Concomitant]
     Active Substance: ESOMEPRAZOLE MAGNESIUM
  8. XYREM [Suspect]
     Active Substance: SODIUM OXYBATE
     Indication: NARCOLEPSY
     Dosage: 3 G, BID
     Route: 048
     Dates: start: 200903, end: 2009
  9. XYREM [Suspect]
     Active Substance: SODIUM OXYBATE
     Dosage: 4.5 G, BID
     Route: 048
     Dates: start: 200906
  10. HYDROCODONE [Concomitant]
     Active Substance: HYDROCODONE
  11. AMBIEN [Concomitant]
     Active Substance: ZOLPIDEM TARTRATE

REACTIONS (9)
  - Hypertension [Recovering/Resolving]
  - Spinal operation [Unknown]
  - Dental caries [Unknown]
  - Oral surgery [Unknown]
  - Tooth infection [Unknown]
  - Abscess soft tissue [Not Recovered/Not Resolved]
  - Stress at work [Unknown]
  - Infection [Unknown]
  - Exostosis of jaw [Not Recovered/Not Resolved]

NARRATIVE: CASE EVENT DATE: 20170524
